FAERS Safety Report 13434571 (Version 1)
Quarter: 2017Q2

REPORT INFORMATION
  Report Type: Spontaneous
  Country: US (occurrence: US)
  Receive Date: 20170413
  Receipt Date: 20170413
  Transmission Date: 20170830
  Serious: Yes (Hospitalization)
  Sender: FDA-Public Use
  Company Number: US-BAYER-2017-070607

PATIENT
  Age: 74 Year
  Sex: Male

DRUGS (2)
  1. HELIXATE FS [Suspect]
     Active Substance: ANTIHEMOPHILIC FACTOR, HUMAN RECOMBINANT
     Indication: FACTOR VIII DEFICIENCY
     Dosage: 3250, PRN
     Route: 042
     Dates: start: 20161121, end: 20170406
  2. HELIXATE FS [Suspect]
     Active Substance: ANTIHEMOPHILIC FACTOR, HUMAN RECOMBINANT
     Indication: FACTOR VIII DEFICIENCY
     Dosage: 975, PRN
     Route: 042
     Dates: start: 20161121, end: 20170406

REACTIONS (2)
  - Tooth extraction [None]
  - Fall [None]

NARRATIVE: CASE EVENT DATE: 20170221
